FAERS Safety Report 16083849 (Version 1)
Quarter: 2019Q1

REPORT INFORMATION
  Report Type: Report from Study
  Country: FR (occurrence: FR)
  Receive Date: 20190318
  Receipt Date: 20190318
  Transmission Date: 20190418
  Serious: Yes (Other)
  Sender: FDA-Public Use
  Company Number: FR-PFIZER INC-2016316884

PATIENT
  Age: 58 Year
  Sex: Male
  Weight: 88 kg

DRUGS (7)
  1. XGEVA [Concomitant]
     Active Substance: DENOSUMAB
     Indication: OSTEOPOROSIS PROPHYLAXIS
     Dosage: 1 INJECTION, EVERY 6 WEEKS
     Route: 058
  2. PRIMPERAN [Concomitant]
     Active Substance: METOCLOPRAMIDE HYDROCHLORIDE
     Indication: PROPHYLAXIS OF NAUSEA AND VOMITING
     Dosage: 10 MG, AS NEEDED
     Route: 048
     Dates: start: 20150527
  3. IMODIUM [Concomitant]
     Active Substance: LOPERAMIDE HYDROCHLORIDE
     Indication: DIARRHOEA
     Dosage: UNK, AS NEEDED
     Route: 048
     Dates: start: 20150227
  4. LORLATINIB [Suspect]
     Active Substance: LORLATINIB
     Indication: NON-SMALL CELL LUNG CANCER
     Dosage: 75 MG, CYCLIC: ONCE DAILY FOR 21 DAY CYCLE
     Route: 048
     Dates: start: 20140110
  5. ASPIRINE [Concomitant]
     Active Substance: ASPIRIN
     Indication: HEADACHE
     Dosage: 500 MG, AS NEEDED
     Route: 048
     Dates: start: 20150505
  6. CALCIMAGON /07357001/ [Concomitant]
     Indication: VITAMIN SUPPLEMENTATION
     Dosage: 500 MG, DAILY
     Route: 048
  7. METOPROLOL. [Concomitant]
     Active Substance: METOPROLOL
     Indication: HYPERTENSION
     Dosage: 12.5 MG, 1X/DAY
     Route: 048
     Dates: end: 20150614

REACTIONS (1)
  - Cataract [Recovered/Resolved]

NARRATIVE: CASE EVENT DATE: 20150320
